FAERS Safety Report 8105763-X (Version None)
Quarter: 2012Q1

REPORT INFORMATION
  Report Type: 
  Country: None (occurrence: None)
  Receive Date: 20120201
  Receipt Date: 20120125
  Transmission Date: 20120608
  Serious: Yes (Other)
  Sender: FDA-Public Use
  Company Number: US-ASTRAZENECA-2012SE05504

PATIENT
  Age: 53 Year
  Sex: Male

DRUGS (8)
  1. ASPIRIN [Concomitant]
  2. IMDUR [Concomitant]
  3. EFFIENT [Concomitant]
  4. PURLAX [Concomitant]
  5. NITROGLYCERIN [Concomitant]
  6. TOPROL-XL [Concomitant]
  7. NEXIUM [Suspect]
     Route: 048
  8. STOOL SOFTNERS [Concomitant]

REACTIONS (1)
  - MYOCARDIAL INFARCTION [None]
